FAERS Safety Report 4601512-8 (Version None)
Quarter: 2005Q1

REPORT INFORMATION
  Report Type: 
  Country: None (occurrence: None)
  Receive Date: 20050308
  Receipt Date: 20050303
  Transmission Date: 20050727
  Serious: Yes (Hospitalization)
  Sender: FDA-Public Use
  Company Number: AT-MERCK-0503AUT00001

PATIENT
  Age: 69 Year
  Sex: Male

DRUGS (5)
  1. COZAAR [Suspect]
     Indication: HYPERTENSION
     Route: 048
     Dates: start: 20041119, end: 20050110
  2. LASIX [Suspect]
     Indication: HYPERTENSION
     Route: 048
     Dates: start: 20041119, end: 20050110
  3. XIPAMIDE [Suspect]
     Indication: HYPERTENSION
     Route: 048
     Dates: start: 20041119, end: 20050110
  4. PANTOPRAZOLE SODIUM [Concomitant]
     Indication: HYPERTENSION
     Route: 048
     Dates: start: 20041119
  5. NORVASC [Suspect]
     Indication: HYPERTENSION
     Route: 048
     Dates: start: 20041119, end: 20050110

REACTIONS (2)
  - JAUNDICE CHOLESTATIC [None]
  - RENAL FAILURE [None]
